FAERS Safety Report 4688915-0 (Version None)
Quarter: 2005Q2

REPORT INFORMATION
  Report Type: 
  Country: None (occurrence: None)
  Receive Date: 20050613
  Receipt Date: 20050511
  Transmission Date: 20051028
  Serious: Yes (Life-Threatening)
  Sender: FDA-Public Use
  Company Number: JP-BOEHRINGER INGELHEIM PHARMACEUTICALS, INC.-2005-BP-07872NB

PATIENT
  Sex: Male
  Weight: 62 kg

DRUGS (6)
  1. MICARDIS [Suspect]
     Indication: HYPERTENSION
     Route: 048
     Dates: start: 20050307, end: 20050502
  2. URINORM [Concomitant]
     Indication: HYPERURICAEMIA
     Route: 048
     Dates: start: 20010419
  3. BEZATOL SR (BEZAFIBRATE) [Concomitant]
     Indication: HYPERLIPIDAEMIA
     Route: 048
     Dates: start: 20000823
  4. NORVASC [Concomitant]
     Indication: HYPERTENSION
     Route: 048
     Dates: start: 20030408
  5. PAXIL [Concomitant]
     Indication: PANIC DISORDER
     Route: 048
     Dates: start: 20030408
  6. LEXOTAN [Concomitant]
     Indication: PSYCHOSOMATIC DISEASE
     Route: 048
     Dates: start: 20030408

REACTIONS (1)
  - HYPERKALAEMIA [None]
